FAERS Safety Report 20420081 (Version 1)
Quarter: 2022Q1

REPORT INFORMATION
  Report Type: Spontaneous
  Country: US (occurrence: None)
  Receive Date: 20220202
  Receipt Date: 20220202
  Transmission Date: 20220423
  Serious: Yes (Death, Life-Threatening, Disabling)
  Sender: FDA-Public Use
  Company Number: None

PATIENT
  Age: 72 Year
  Sex: Male
  Weight: 95.25 kg

DRUGS (7)
  1. LEVOFLOXACIN [Suspect]
     Active Substance: LEVOFLOXACIN
     Indication: Cellulitis
     Dosage: OVER 1 HR OR 2 HR
     Route: 042
     Dates: start: 20170704, end: 20170704
  2. ATENOLOL [Concomitant]
     Active Substance: ATENOLOL
  3. SIMVASTATIN [Concomitant]
     Active Substance: SIMVASTATIN
  4. VITAMINS [Concomitant]
     Active Substance: VITAMINS
  5. tums (antacid) [Concomitant]
  6. IV meds [Concomitant]
  7. ASPIRIN [Concomitant]
     Active Substance: ASPIRIN

REACTIONS (5)
  - Tendon rupture [None]
  - Tendon rupture [None]
  - Confusional state [None]
  - Headache [None]
  - Myocardial infarction [None]

NARRATIVE: CASE EVENT DATE: 20170704
